FAERS Safety Report 6952473-8 (Version None)
Quarter: 2010Q3

REPORT INFORMATION
  Report Type: 
  Country: None (occurrence: None)
  Receive Date: 20100829
  Receipt Date: 20100507
  Transmission Date: 20110219
  Serious: No
  Sender: FDA-Public Use
  Company Number: US-ABBOTT-10P-163-0643562-00

PATIENT
  Weight: 108.96 kg

DRUGS (11)
  1. NIASPAN [Suspect]
     Indication: BLOOD CHOLESTEROL INCREASED
     Route: 048
     Dates: start: 20050101, end: 20080101
  2. NIASPAN [Suspect]
     Route: 048
     Dates: start: 20080101
  3. LOVASTATIN [Concomitant]
     Indication: HIGH DENSITY LIPOPROTEIN DECREASED
  4. LOVASTATIN [Concomitant]
     Indication: LOW DENSITY LIPOPROTEIN INCREASED
  5. ASPIRIN [Concomitant]
     Indication: PROPHYLAXIS
     Route: 048
  6. ASPIRIN [Concomitant]
     Indication: FLUSHING
  7. METFORMIN [Concomitant]
     Indication: DIABETES MELLITUS
  8. UNKNOWN SINUS MEDICATION [Concomitant]
     Indication: SEASONAL ALLERGY
  9. TERAZOSIN HCL [Concomitant]
     Indication: BENIGN PROSTATIC HYPERPLASIA
  10. OMEPRAZOLE [Concomitant]
     Indication: DYSPEPSIA
  11. TAGAMET [Concomitant]
     Indication: DYSPEPSIA

REACTIONS (1)
  - FLUSHING [None]
